FAERS Safety Report 14467323 (Version 2)
Quarter: 2018Q2

REPORT INFORMATION
  Report Type: Spontaneous
  Country: CH (occurrence: CH)
  Receive Date: 20180131
  Receipt Date: 20180411
  Transmission Date: 20180711
  Serious: Yes (Other)
  Sender: FDA-Public Use
  Company Number: CH-ASTRAZENECA-2018SE09752

PATIENT
  Age: 9 Year
  Sex: Male

DRUGS (6)
  1. AMOXICILLIN. [Suspect]
     Active Substance: AMOXICILLIN
     Dosage: UNSPECIFIED
     Route: 048
  2. BALDRIAN [Suspect]
     Active Substance: VALERIAN
     Dosage: UNSPECIFIED
     Route: 048
  3. ANTRA [Suspect]
     Active Substance: OMEPRAZOLE
     Dosage: UNSPECIFIED
     Route: 048
  4. ZOLPIDEM [Suspect]
     Active Substance: ZOLPIDEM\ZOLPIDEM TARTRATE
     Dosage: UNSPECIFIED
     Route: 048
  5. ALGIFOR [Suspect]
     Active Substance: IBUPROFEN
     Dosage: UNSPECIFIED
     Route: 048
  6. SIMILASAN FOR INFLAMMATION OF THE MOUTH AND THROAT [Suspect]
     Active Substance: HOMEOPATHICS
     Dosage: UNSPECIFIED
     Route: 048

REACTIONS (2)
  - Acute kidney injury [Recovering/Resolving]
  - Blood creatine phosphokinase increased [Recovering/Resolving]

NARRATIVE: CASE EVENT DATE: 20171226
